FAERS Safety Report 18039258 (Version 1)
Quarter: 2020Q3

REPORT INFORMATION
  Report Type: Spontaneous
  Country: US (occurrence: US)
  Receive Date: 20200717
  Receipt Date: 20200717
  Transmission Date: 20201103
  Serious: Yes (Other)
  Sender: FDA-Public Use
  Company Number: US-PURDUE-USA-2020-0157561

PATIENT
  Sex: Male

DRUGS (2)
  1. FENTANYL. [Suspect]
     Active Substance: FENTANYL
     Indication: PRODUCT USED FOR UNKNOWN INDICATION
     Dosage: UNK
     Route: 065
  2. OXYCONTIN [Suspect]
     Active Substance: OXYCODONE HYDROCHLORIDE
     Indication: ARTHRITIS
     Dosage: UNK
     Route: 048
     Dates: start: 2012

REACTIONS (12)
  - Mood swings [Unknown]
  - Memory impairment [Unknown]
  - Insomnia [Unknown]
  - Intellectual disability [Unknown]
  - Depression [Unknown]
  - Weight decreased [Unknown]
  - Asthenia [Unknown]
  - Confusional state [Unknown]
  - Overdose [Unknown]
  - Drug dependence [Unknown]
  - Antisocial behaviour [Unknown]
  - Anxiety [Unknown]
